FAERS Safety Report 8210420-5 (Version None)
Quarter: 2012Q1

REPORT INFORMATION
  Report Type: 
  Country: None (occurrence: None)
  Receive Date: 20120314
  Receipt Date: 20120116
  Transmission Date: 20120608
  Serious: No
  Sender: FDA-Public Use
  Company Number: US-ASTRAZENECA-2012SE03155

PATIENT
  Age: 56 Year
  Sex: Male

DRUGS (6)
  1. TOPROL-XL [Suspect]
     Route: 048
  2. ZESTRIL [Suspect]
     Route: 048
  3. PRASUGREL HCL [Concomitant]
  4. AMLODIPINE BESYLATE [Concomitant]
  5. NIACIN [Concomitant]
  6. ASPIRIN [Concomitant]

REACTIONS (3)
  - DRUG DOSE OMISSION [None]
  - HYPERTRIGLYCERIDAEMIA [None]
  - HYPERTENSION [None]
